FAERS Safety Report 11186138 (Version 1)
Quarter: 2015Q2

REPORT INFORMATION
  Report Type: Report from Study
  Country: CO (occurrence: CO)
  Receive Date: 20150612
  Receipt Date: 20150612
  Transmission Date: 20150821
  Serious: Yes (Death)
  Sender: FDA-Public Use
  Company Number: CO-ABBVIE-15P-036-1408007-00

PATIENT
  Age: 63 Year
  Sex: Female

DRUGS (1)
  1. PARICALCITOL. [Suspect]
     Active Substance: PARICALCITOL
     Indication: HYPERPARATHYROIDISM SECONDARY
     Route: 042
     Dates: start: 20150223, end: 20150528

REACTIONS (2)
  - Cerebrovascular accident [Fatal]
  - Endocarditis bacterial [Fatal]

NARRATIVE: CASE EVENT DATE: 20150530
